FAERS Safety Report 6413522-9 (Version None)
Quarter: 2009Q4

REPORT INFORMATION
  Report Type: 
  Country: None (occurrence: None)
  Receive Date: 20091026
  Receipt Date: 20091014
  Transmission Date: 20100525
  Serious: Yes (Other)
  Sender: FDA-Public Use
  Company Number: US-KINGPHARMUSA00001-K200901270

PATIENT
  Sex: Male
  Weight: 71.7 kg

DRUGS (28)
  1. SEPTRA [Suspect]
     Dosage: 1 DF, QD
     Route: 048
     Dates: start: 20010313, end: 20080610
  2. ARANESP [Suspect]
     Indication: RENAL FAILURE CHRONIC
     Dosage: 300 MCG, QW
     Dates: start: 20070725, end: 20080612
  3. ARANESP [Suspect]
  4. ARANESP [Suspect]
  5. ARANESP [Suspect]
  6. ARANESP [Suspect]
  7. ARANESP [Suspect]
  8. ARANESP [Suspect]
  9. ARANESP [Suspect]
  10. ARANESP [Suspect]
  11. ARANESP [Suspect]
  12. ARANESP [Suspect]
  13. ARANESP [Suspect]
  14. MYCOPHENOLATE MOFETIL [Suspect]
     Dosage: 500 MG, BID
     Dates: start: 20010313, end: 20080610
  15. VITAMINS [Concomitant]
  16. CYCLOSPORINE [Concomitant]
     Dosage: UNK
     Dates: start: 20010313
  17. PREDNISONE ACETATE [Concomitant]
     Dosage: 75 MG, QD
     Dates: start: 20010313
  18. ATENOLOL [Concomitant]
     Dosage: 50 MG, QD
     Dates: start: 20011002
  19. DOXAZOSIN MESILATE [Concomitant]
     Dosage: 8 MG, BID
     Dates: start: 20070912
  20. CLONIDINE [Concomitant]
     Dosage: 0.15 MG, BID
     Dates: start: 20080116
  21. LOSARTAN POTASSIUM [Concomitant]
     Dosage: 100 MG, BID
     Dates: start: 20060818
  22. SIMVASTATIN [Concomitant]
     Dosage: 20 MG, QD
     Dates: start: 20070314
  23. CALCITRIOL [Concomitant]
     Dosage: 0.5 MG, QD
     Dates: start: 20080311
  24. OSCAL [Concomitant]
     Dosage: 500 MG, BID
     Dates: start: 20021112
  25. PANTOPRAZOLE SODIUM [Concomitant]
     Dosage: 40 MG, QD
     Dates: start: 20070223
  26. SODIUM BICARBONATE DALMAU [Concomitant]
     Dosage: 560 MG, BID
     Route: 048
     Dates: start: 20070523
  27. TUMS [Concomitant]
     Dosage: UNK
     Dates: start: 20071204
  28. AMLODIPINE BESILATE [Concomitant]
     Dosage: 10 MG, QD
     Dates: start: 20040325

REACTIONS (6)
  - APLASIA PURE RED CELL [None]
  - GLOMERULONEPHRITIS MEMBRANOPROLIFERATIVE [None]
  - NORMOCHROMIC NORMOCYTIC ANAEMIA [None]
  - PARVOVIRUS B19 TEST [None]
  - THROMBOCYTOPENIA [None]
  - WEIGHT DECREASED [None]
